FAERS Safety Report 7903579-8 (Version None)
Quarter: 2011Q4

REPORT INFORMATION
  Report Type: 
  Country: None (occurrence: None)
  Receive Date: 20111109
  Receipt Date: 20111109
  Transmission Date: 20120403
  Serious: Yes (Hospitalization)
  Sender: FDA-Public Use
  Company Number: None

PATIENT
  Sex: Female
  Weight: 92.986 kg

DRUGS (1)
  1. CLOMIPRAMINE HCL [Suspect]
     Indication: OBSESSIVE-COMPULSIVE DISORDER
     Dosage: 1 PILL
     Dates: start: 20110909, end: 20110909

REACTIONS (7)
  - NAUSEA [None]
  - TREMOR [None]
  - HEART RATE INCREASED [None]
  - DRUG INTOLERANCE [None]
  - HYPERHIDROSIS [None]
  - SKIN BURNING SENSATION [None]
  - DIZZINESS [None]
